FAERS Safety Report 8597577-1 (Version None)
Quarter: 2012Q3

REPORT INFORMATION
  Report Type: 
  Country: None (occurrence: None)
  Receive Date: 20120816
  Receipt Date: 20120802
  Transmission Date: 20120928
  Serious: No
  Sender: FDA-Public Use
  Company Number: US-BAYER-2012-079260

PATIENT
  Age: 83 Year
  Sex: Female
  Weight: 56.689 kg

DRUGS (1)
  1. ALEVE (CAPLET) [Suspect]
     Indication: HEADACHE
     Dosage: UNK UNK, PRN
     Route: 048

REACTIONS (1)
  - ABDOMINAL PAIN UPPER [None]
